FAERS Safety Report 5524518-3 (Version None)
Quarter: 2007Q4

REPORT INFORMATION
  Report Type: 
  Country: None (occurrence: None)
  Receive Date: 20071122
  Receipt Date: 20071114
  Transmission Date: 20080405
  Serious: Yes (Other)
  Sender: FDA-Public Use
  Company Number: PHHY2007BR00497

PATIENT
  Age: 64 Year
  Sex: Female

DRUGS (7)
  1. FORASEQ [Suspect]
     Indication: ASTHMA
     Dosage: 12/400 MCG
     Dates: start: 20071001, end: 20071025
  2. BALCOR [Concomitant]
     Indication: HYPERTENSION
     Dosage: UNK, QD
     Route: 048
     Dates: start: 19930101
  3. ENALAPRIL W/HYDROCHLOROTHIAZIDE [Concomitant]
     Dosage: UNK, QD
     Route: 048
     Dates: start: 19930101
  4. OMEPRAZOLE [Concomitant]
     Dosage: UNK, BID
     Route: 048
  5. ALPRAZOLAM [Concomitant]
     Indication: INSOMNIA
     Dosage: 1 MG, QD
     Route: 048
  6. FORADIL [Suspect]
     Indication: ASTHMA
     Dosage: UNK, BID
     Dates: start: 20030101, end: 20071001
  7. FORADIL [Suspect]
     Dosage: UNK, BID
     Dates: start: 20071025

REACTIONS (3)
  - ARRHYTHMIA [None]
  - ARTERIAL OCCLUSIVE DISEASE [None]
  - HEART RATE INCREASED [None]
